FAERS Safety Report 6647970-9 (Version None)
Quarter: 2010Q1

REPORT INFORMATION
  Report Type: 
  Country: None (occurrence: None)
  Receive Date: 20100318
  Receipt Date: 20100308
  Transmission Date: 20100710
  Serious: Yes (Other)
  Sender: FDA-Public Use
  Company Number: 2008AL011001

PATIENT
  Age: 51 Year
  Sex: Male

DRUGS (10)
  1. FLUOXETINE [Suspect]
     Indication: DEPRESSION
     Dosage: 40 MG;PO
     Route: 048
     Dates: start: 20050210, end: 20080903
  2. OXYCODONE HCL [Suspect]
     Indication: PAIN
     Dosage: 80 MG;BID;PO
     Route: 048
     Dates: start: 20061016
  3. OMEPRAZOOE [Concomitant]
  4. PREDNISOLONE [Concomitant]
  5. ETORICOXIB [Concomitant]
  6. SENNA [Concomitant]
  7. ISPHAGHULA [Concomitant]
  8. CALCICHEW [Concomitant]
  9. IBANDRONIC ACID [Concomitant]
  10. DIHYDROCODEINE BITARTRATE INJ [Concomitant]

REACTIONS (6)
  - CONSTIPATION [None]
  - DRUG DEPENDENCE [None]
  - DRUG INEFFECTIVE [None]
  - DRUG INTERACTION [None]
  - HYPERHIDROSIS [None]
  - URINARY RETENTION [None]
